FAERS Safety Report 12475107 (Version 5)
Quarter: 2016Q4

REPORT INFORMATION
  Report Type: Report from Study
  Country: US (occurrence: US)
  Receive Date: 20160617
  Receipt Date: 20161031
  Transmission Date: 20170207
  Serious: Yes (Hospitalization, Other)
  Sender: FDA-Public Use
  Company Number: US-GILEAD-2016-0219395

PATIENT
  Age: 55 Year
  Sex: Female
  Weight: 84.35 kg

DRUGS (19)
  1. BUSPIRONE [Concomitant]
     Active Substance: BUSPIRONE HYDROCHLORIDE
  2. ATORVASTATIN [Concomitant]
     Active Substance: ATORVASTATIN
  3. AMBRISENTAN [Suspect]
     Active Substance: AMBRISENTAN
     Indication: PULMONARY ARTERIAL HYPERTENSION
     Dosage: 5 MG, QD
     Route: 065
     Dates: end: 20160512
  4. AMBRISENTAN [Suspect]
     Active Substance: AMBRISENTAN
     Indication: CHRONIC OBSTRUCTIVE PULMONARY DISEASE
     Dosage: 10 MG, QD
     Route: 065
     Dates: start: 20160513, end: 201606
  5. LASIX [Concomitant]
     Active Substance: FUROSEMIDE
  6. FISH OIL [Concomitant]
     Active Substance: FISH OIL
  7. DULERA [Concomitant]
     Active Substance: FORMOTEROL FUMARATE DIHYDRATE\MOMETASONE FUROATE
  8. UPTRAVI [Concomitant]
     Active Substance: SELEXIPAG
  9. AMBRISENTAN [Suspect]
     Active Substance: AMBRISENTAN
     Indication: HYPOXIA
     Dosage: 5 MG, UNK
     Route: 065
     Dates: start: 201606
  10. DILTIAZEM CD [Concomitant]
     Active Substance: DILTIAZEM
  11. REVATIO [Concomitant]
     Active Substance: SILDENAFIL CITRATE
  12. DIGOXIN. [Concomitant]
     Active Substance: DIGOXIN
  13. ALBUTEROL                          /00139501/ [Concomitant]
     Active Substance: ALBUTEROL
  14. GLUCOPHAGE [Concomitant]
     Active Substance: METFORMIN HYDROCHLORIDE
  15. ELIQUIS [Concomitant]
     Active Substance: APIXABAN
  16. SPIRIVA [Concomitant]
     Active Substance: TIOTROPIUM BROMIDE MONOHYDRATE
  17. CLONAZEPAM. [Concomitant]
     Active Substance: CLONAZEPAM
  18. COZAAR [Concomitant]
     Active Substance: LOSARTAN POTASSIUM
  19. SOTALOL. [Concomitant]
     Active Substance: SOTALOL

REACTIONS (11)
  - Diarrhoea [Unknown]
  - Pain [Recovering/Resolving]
  - Atrial fibrillation [Unknown]
  - Pulmonary arterial pressure increased [Unknown]
  - Treatment noncompliance [Recovered/Resolved]
  - Dehydration [Unknown]
  - Oedema [Unknown]
  - Asthenia [Recovering/Resolving]
  - Fatigue [Unknown]
  - Headache [Recovered/Resolved]
  - Abdominal distension [Unknown]

NARRATIVE: CASE EVENT DATE: 20160218
